FAERS Safety Report 4749502-9 (Version None)
Quarter: 2005Q3

REPORT INFORMATION
  Report Type: 
  Country: None (occurrence: None)
  Receive Date: 20050819
  Receipt Date: 20050803
  Transmission Date: 20060218
  Serious: Yes (Hospitalization)
  Sender: FDA-Public Use
  Company Number: 2005AL003107

PATIENT

DRUGS (2)
  1. GABAPENTIN [Suspect]
  2. CARBIDOPA AND LEVODOPA TABLETS, USP, 25 MG/100MG (PUREPAC) [Suspect]

REACTIONS (1)
  - OVERDOSE [None]
